FAERS Safety Report 22134287 (Version 2)
Quarter: 2023Q1

REPORT INFORMATION
  Report Type: Spontaneous
  Country: US (occurrence: US)
  Receive Date: 20230324
  Receipt Date: 20230331
  Transmission Date: 20230417
  Serious: No
  Sender: FDA-Public Use
  Company Number: US-ELI_LILLY_AND_COMPANY-US202303012287

PATIENT
  Sex: Female

DRUGS (5)
  1. MOUNJARO [Suspect]
     Active Substance: TIRZEPATIDE
     Indication: Overweight
     Dosage: 7.5 MG, UNKNOWN
     Route: 058
     Dates: start: 20230104
  2. MOUNJARO [Suspect]
     Active Substance: TIRZEPATIDE
     Indication: Overweight
     Dosage: 7.5 MG, UNKNOWN
     Route: 058
     Dates: start: 20230104
  3. MOUNJARO [Suspect]
     Active Substance: TIRZEPATIDE
     Indication: Blood glucose
     Dosage: 7.5 UNK
     Route: 058
  4. MOUNJARO [Suspect]
     Active Substance: TIRZEPATIDE
     Indication: Blood glucose
     Dosage: 7.5 UNK
     Route: 058
  5. HUMIRA [Concomitant]
     Active Substance: ADALIMUMAB
     Indication: Arthritis
     Dosage: 40 MG, MONTHLY (2/M)

REACTIONS (3)
  - Off label use [Unknown]
  - Injection site pain [Not Recovered/Not Resolved]
  - Injection site bruising [Not Recovered/Not Resolved]
